FAERS Safety Report 11182521 (Version 3)
Quarter: 2017Q3

REPORT INFORMATION
  Report Type: Spontaneous
  Country: US (occurrence: US)
  Receive Date: 20150611
  Receipt Date: 20170914
  Transmission Date: 20171127
  Serious: No
  Sender: FDA-Public Use
  Company Number: US-ASTELLAS-2015US017185

PATIENT
  Age: 85 Year
  Sex: Male

DRUGS (1)
  1. XTANDI [Suspect]
     Active Substance: ENZALUTAMIDE
     Indication: PROSTATE CANCER
     Dosage: 160 MG, ONCE DAILY (4 CAPSULES)
     Route: 048
     Dates: start: 20150417

REACTIONS (13)
  - Pain [Unknown]
  - Hair texture abnormal [Unknown]
  - Vision blurred [Unknown]
  - Decreased appetite [Unknown]
  - Weight decreased [Unknown]
  - Somnolence [Unknown]
  - Diarrhoea [Unknown]
  - Body height decreased [Unknown]
  - Constipation [Not Recovered/Not Resolved]
  - Blood glucose increased [Unknown]
  - Pollakiuria [Unknown]
  - Constipation [Unknown]
  - Arthralgia [Unknown]

NARRATIVE: CASE EVENT DATE: 20160427
